FAERS Safety Report 17570309 (Version 1)
Quarter: 2020Q1

REPORT INFORMATION
  Report Type: Spontaneous
  Country: PE (occurrence: PE)
  Receive Date: 20200323
  Receipt Date: 20200323
  Transmission Date: 20200409
  Serious: Yes (Other)
  Sender: FDA-Public Use
  Company Number: PE-US-PROVELL PHARMACEUTICALS LLC-9153183

PATIENT
  Sex: Female
  Weight: 112 kg

DRUGS (1)
  1. EUTHYROX [Suspect]
     Active Substance: LEVOTHYROXINE SODIUM
     Indication: HYPOTHYROIDISM

REACTIONS (6)
  - Arrhythmia [Not Recovered/Not Resolved]
  - Alopecia [Unknown]
  - Diabetes mellitus [Unknown]
  - Pain in extremity [Unknown]
  - Weight loss poor [Unknown]
  - Arthralgia [Unknown]
